FAERS Safety Report 9565972 (Version 2)
Quarter: 2013Q4

REPORT INFORMATION
  Report Type: Report from Study
  Country: BR (occurrence: BR)
  Receive Date: 20130930
  Receipt Date: 20131218
  Transmission Date: 20140711
  Serious: Yes (Other)
  Sender: FDA-Public Use
  Company Number: PHHY2013BR108276

PATIENT
  Age: 41 Year
  Sex: Female
  Weight: 63 kg

DRUGS (7)
  1. RITALINA [Suspect]
     Indication: ATTENTION DEFICIT/HYPERACTIVITY DISORDER
     Dosage: 2 DF, DAILY
  2. RITALINA [Suspect]
     Indication: IMPULSIVE BEHAVIOUR
     Dosage: 3 DF, DAILY
  3. AZITHROMYCIN [Concomitant]
     Dosage: 150 MG, UNK
     Dates: start: 201305
  4. DILTIAZEM [Concomitant]
     Dosage: 50 MG, UNK
  5. PAROXETINA [Concomitant]
     Dosage: 30 MG, UNK
     Dates: start: 201306
  6. DONAREN [Concomitant]
     Dosage: UNK UKN, UNK
  7. ZOLPIDEM [Concomitant]
     Dosage: UNK UKN, UNK

REACTIONS (14)
  - Depression [Unknown]
  - Anxiety [Unknown]
  - Sleep disorder [Unknown]
  - Sensory loss [Recovering/Resolving]
  - Nausea [Recovering/Resolving]
  - Malaise [Unknown]
  - Tremor [Recovering/Resolving]
  - Pain [Unknown]
  - Feeling hot [Unknown]
  - Spinal disorder [Unknown]
  - Abdominal pain [Unknown]
  - Abdominal discomfort [Recovering/Resolving]
  - Weight decreased [Unknown]
  - Disturbance in attention [Unknown]
